FAERS Safety Report 7354081-6 (Version None)
Quarter: 2011Q1

REPORT INFORMATION
  Report Type: 
  Country: None (occurrence: None)
  Receive Date: 20110315
  Receipt Date: 20101129
  Transmission Date: 20110831
  Serious: Yes (Hospitalization)
  Sender: FDA-Public Use
  Company Number: PE-GILEAD-2010-0028549

PATIENT
  Age: 23 Year
  Sex: Male
  Weight: 51.9 kg

DRUGS (1)
  1. EMTRICITABINE/TENOFOVIR DISOPROXIL FUMARATE [Suspect]
     Indication: PROPHYLAXIS AGAINST HIV INFECTION
     Dates: start: 20070910, end: 20100221

REACTIONS (1)
  - NON-HODGKIN'S LYMPHOMA [None]
